FAERS Safety Report 13183393 (Version 1)
Quarter: 2017Q1

REPORT INFORMATION
  Report Type: Spontaneous
  Country: US (occurrence: US)
  Receive Date: 20170203
  Receipt Date: 20170203
  Transmission Date: 20170428
  Serious: No
  Sender: FDA-Public Use
  Company Number: None

PATIENT

DRUGS (2)
  1. OXCARBAZEPINE. [Suspect]
     Active Substance: OXCARBAZEPINE
  2. RISPERDONE [Suspect]
     Active Substance: RISPERIDONE

REACTIONS (6)
  - Tic [None]
  - Movement disorder [None]
  - Cardiac disorder [None]
  - Disease complication [None]
  - Cerebrovascular accident [None]
  - Hypertension [None]
